FAERS Safety Report 23901739 (Version 1)
Quarter: 2024Q2

REPORT INFORMATION
  Report Type: Spontaneous
  Country: US (occurrence: None)
  Receive Date: 20240526
  Receipt Date: 20240526
  Transmission Date: 20240716
  Serious: No
  Sender: FDA-Public Use
  Company Number: US-ROCHE-3353762

PATIENT
  Age: 56 Year
  Sex: Female
  Weight: 72.64 kg

DRUGS (1)
  1. OCREVUS [Suspect]
     Active Substance: OCRELIZUMAB
     Indication: Multiple sclerosis
     Dosage: STATUS: ONGOING
     Route: 042

REACTIONS (2)
  - Muscular weakness [Recovered/Resolved]
  - Fatigue [Recovered/Resolved]
